FAERS Safety Report 10906847 (Version 1)
Quarter: 2015Q1

REPORT INFORMATION
  Report Type: Spontaneous
  Country: US (occurrence: None)
  Receive Date: 20150309
  Receipt Date: 20150309
  Transmission Date: 20150721
  Serious: Yes (Hospitalization, Other)
  Sender: FDA-Public Use
  Company Number: CPI 6831

PATIENT
  Age: 12 Month

DRUGS (1)
  1. LACTULOSE. [Suspect]
     Active Substance: LACTULOSE
     Indication: CONSTIPATION
     Dosage: THERAPY DATES:  UNKNOWN (4 WEEK PERIOD), 3.3G EVERY DAY ORAL
     Route: 048

REACTIONS (1)
  - Varicella [None]
